FAERS Safety Report 7986203-8 (Version None)
Quarter: 2011Q4

REPORT INFORMATION
  Report Type: 
  Country: None (occurrence: None)
  Receive Date: 20111216
  Receipt Date: 20111214
  Transmission Date: 20120403
  Serious: Yes (Hospitalization)
  Sender: FDA-Public Use
  Company Number: US-GLAXOSMITHKLINE-A0958170A

PATIENT
  Age: 60 Year
  Sex: Female

DRUGS (4)
  1. CLONAZEPAM [Concomitant]
  2. LAMICTAL XR [Suspect]
     Indication: CONVULSION
     Dosage: 100MG PER DAY
     Route: 048
     Dates: start: 20110801
  3. ASPIRIN [Concomitant]
  4. LAMICTAL [Concomitant]

REACTIONS (4)
  - LUNG ABSCESS [None]
  - MUSCULOSKELETAL CHEST PAIN [None]
  - MOUTH ULCERATION [None]
  - PNEUMOTHORAX [None]
